FAERS Safety Report 25653112 (Version 2)
Quarter: 2025Q4

REPORT INFORMATION
  Report Type: Spontaneous
  Country: US (occurrence: US)
  Receive Date: 20250807
  Receipt Date: 20251003
  Transmission Date: 20260117
  Serious: Yes (Other)
  Sender: ROCHE
  Company Number: US-ROCHE-10000352473

PATIENT
  Age: 87 Year
  Sex: Female

DRUGS (5)
  1. VABYSMO [Suspect]
     Active Substance: FARICIMAB-SVOA
     Indication: Neovascular age-related macular degeneration
     Route: 050
  2. VABYSMO [Suspect]
     Active Substance: FARICIMAB-SVOA
     Route: 031
     Dates: start: 20250725
  3. VABYSMO [Suspect]
     Active Substance: FARICIMAB-SVOA
  4. VABYSMO [Suspect]
     Active Substance: FARICIMAB-SVOA
  5. VABYSMO [Suspect]
     Active Substance: FARICIMAB-SVOA
     Indication: Neovascular age-related macular degeneration
     Route: 031
     Dates: start: 20230831

REACTIONS (5)
  - Endophthalmitis [Not Recovered/Not Resolved]
  - Hyphaema [Unknown]
  - Off label use [Unknown]
  - Anterior chamber cell [Unknown]
  - Anterior chamber fibrin [Unknown]

NARRATIVE: CASE EVENT DATE: 20250730
